FAERS Safety Report 4744632-X (Version None)
Quarter: 2005Q3

REPORT INFORMATION
  Report Type: 
  Country: None (occurrence: None)
  Receive Date: 20050815
  Receipt Date: 20050511
  Transmission Date: 20060218
  Serious: Yes (Other)
  Sender: FDA-Public Use
  Company Number: PHHO2005CA07613

PATIENT
  Age: 42 Year
  Sex: Female

DRUGS (8)
  1. CLOZARIL [Suspect]
     Indication: SCHIZOPHRENIA
     Dosage: 25 MG / DAY
     Route: 048
     Dates: start: 20050322
  2. CLOZARIL [Suspect]
     Dosage: 150 MG / DAY
     Route: 048
     Dates: end: 20050425
  3. LORAZEPAM [Concomitant]
  4. DIVALPROEX SODIUM [Concomitant]
  5. LEVOTHYROXINE [Concomitant]
  6. OLANZAPINE [Concomitant]
  7. IBUPROFEN [Concomitant]
  8. ACETAMINOPHEN [Concomitant]

REACTIONS (7)
  - CARDIOTOXICITY [None]
  - DIARRHOEA [None]
  - MYALGIA [None]
  - OEDEMA PERIPHERAL [None]
  - PYREXIA [None]
  - RENAL DISORDER [None]
  - TACHYCARDIA [None]
